FAERS Safety Report 11127731 (Version 2)
Quarter: 2015Q2

REPORT INFORMATION
  Report Type: Spontaneous
  Country: US (occurrence: US)
  Receive Date: 20150521
  Receipt Date: 20150602
  Transmission Date: 20150821
  Serious: Yes (Other)
  Sender: FDA-Public Use
  Company Number: US-MYLANLABS-2015M1015928

PATIENT

DRUGS (3)
  1. SENEXON                            /00142208/ [Concomitant]
     Dosage: UNK
  2. XULANE [Suspect]
     Active Substance: ETHINYL ESTRADIOL\NORELGESTROMIN
     Indication: CONTRACEPTION
     Dosage: 150/35 ?G, QD, CHANGE QW X 3W, OFF 1W
     Route: 062
     Dates: start: 20150329
  3. CALCIUM [Concomitant]
     Active Substance: CALCIUM
     Dosage: UNK

REACTIONS (2)
  - Pregnancy on contraceptive [Not Recovered/Not Resolved]
  - Metrorrhagia [Not Recovered/Not Resolved]

NARRATIVE: CASE EVENT DATE: 2015
